FAERS Safety Report 6300266-7 (Version None)
Quarter: 2009Q3

REPORT INFORMATION
  Report Type: 
  Country: None (occurrence: None)
  Receive Date: 20090806
  Receipt Date: 20090803
  Transmission Date: 20100115
  Serious: Yes (Hospitalization)
  Sender: FDA-Public Use
  Company Number: DE-AMGEN-US358844

PATIENT
  Age: 55 Year
  Sex: Male

DRUGS (2)
  1. ENBREL [Suspect]
     Indication: RHEUMATOID ARTHRITIS
     Dosage: LYOPHILIZED, DOSE AND FREQUENCY UNKNOWN
     Route: 058
     Dates: start: 20040402
  2. ENBREL [Suspect]
     Dosage: PRE-FILLED SYRINGE, 25 MG ONE TIME EVERY TWO WEEKS
     Route: 058
     Dates: end: 20090705

REACTIONS (3)
  - ARTHROPOD BITE [None]
  - HYPERHIDROSIS [None]
  - NAUSEA [None]
